FAERS Safety Report 5162016-X (Version None)
Quarter: 2006Q4

REPORT INFORMATION
  Report Type: 
  Country: None (occurrence: None)
  Receive Date: 20061121
  Receipt Date: 20061109
  Transmission Date: 20070319
  Serious: Yes (Other)
  Sender: FDA-Public Use
  Company Number: DSA_28994_2006

PATIENT
  Age: 46 Year
  Sex: Female

DRUGS (3)
  1. TAVOR [Suspect]
     Indication: PANIC ATTACK
     Dosage: 0.5 MG TID PO
     Route: 048
  2. CABASERIL [Concomitant]
  3. MOVERGAN [Concomitant]

REACTIONS (3)
  - DRUG WITHDRAWAL SYNDROME [None]
  - MUSCLE SPASMS [None]
  - PSYCHOTIC DISORDER [None]
